FAERS Safety Report 18968424 (Version 1)
Quarter: 2021Q1

REPORT INFORMATION
  Report Type: Spontaneous
  Country: US (occurrence: US)
  Receive Date: 20210303
  Receipt Date: 20210303
  Transmission Date: 20210420
  Serious: Yes (Death)
  Sender: FDA-Public Use
  Company Number: None

PATIENT
  Age: 74 Year
  Sex: Female
  Weight: 79.83 kg

DRUGS (2)
  1. REMDESIVIR 100MG [Suspect]
     Active Substance: REMDESIVIR
     Indication: COVID-19 TREATMENT
     Dosage: ?          OTHER DOSE:200MGX1, 100MG;OTHER ROUTE:IVPB?
     Dates: start: 20201208, end: 20201211
  2. ZITHROMAX [Suspect]
     Active Substance: AZITHROMYCIN DIHYDRATE
     Dosage: ?          OTHER ROUTE:IVPB?
     Dates: start: 20201205, end: 20201211

REACTIONS (2)
  - COVID-19 [None]
  - Death [None]

NARRATIVE: CASE EVENT DATE: 20201222
